FAERS Safety Report 15391871 (Version 3)
Quarter: 2018Q4

REPORT INFORMATION
  Report Type: Spontaneous
  Country: JP (occurrence: JP)
  Receive Date: 20180917
  Receipt Date: 20181002
  Transmission Date: 20190204
  Serious: Yes (Other)
  Sender: FDA-Public Use
  Company Number: JP-PFIZER INC-2018133952

PATIENT
  Age: 35 Year
  Sex: Female

DRUGS (1)
  1. MEDROXYPROGESTERONE ACETATE. [Suspect]
     Active Substance: MEDROXYPROGESTERONE ACETATE
     Indication: PROPHYLAXIS
     Dosage: UNK (HIGH DOSE)

REACTIONS (3)
  - Preterm premature rupture of membranes [Unknown]
  - Omphalitis [Unknown]
  - Placental disorder [Unknown]
